FAERS Safety Report 8075329-9 (Version None)
Quarter: 2012Q1

REPORT INFORMATION
  Report Type: 
  Country: None (occurrence: None)
  Receive Date: 20120127
  Receipt Date: 20111119
  Transmission Date: 20120608
  Serious: No
  Sender: FDA-Public Use
  Company Number: US-MYLANLABS-2011S1023690

PATIENT
  Sex: Male

DRUGS (1)
  1. CLONIDINE [Suspect]
     Indication: HYPERTENSION
     Route: 062

REACTIONS (3)
  - APPLICATION SITE SCAR [None]
  - HYPERSENSITIVITY [None]
  - APPLICATION SITE VESICLES [None]
